FAERS Safety Report 4528125-0 (Version None)
Quarter: 2004Q4

REPORT INFORMATION
  Report Type: 
  Country: None (occurrence: None)
  Receive Date: 20041130
  Receipt Date: 20040727
  Transmission Date: 20050328
  Serious: No
  Sender: FDA-Public Use
  Company Number: WAES 0407USA02392

PATIENT
  Age: 62 Year
  Sex: Male

DRUGS (7)
  1. ZETIA [Suspect]
     Indication: DYSLIPIDAEMIA
     Dosage: 10 MG/DAILY/PO
     Route: 048
     Dates: start: 20040621
  2. AMARYL [Concomitant]
  3. AVANDIA [Concomitant]
  4. LEVITRA [Concomitant]
  5. XALATAN [Concomitant]
  6. ZOCOR [Concomitant]
  7. METFORMIN HCL [Concomitant]

REACTIONS (1)
  - INTRAOCULAR PRESSURE INCREASED [None]
